FAERS Safety Report 11310926 (Version 2)
Quarter: 2015Q3

REPORT INFORMATION
  Report Type: Spontaneous
  Country: US (occurrence: US)
  Receive Date: 20150726
  Receipt Date: 20150730
  Transmission Date: 20151125
  Serious: No
  Sender: FDA-Public Use
  Company Number: US-TEVA-581232USA

PATIENT
  Age: 38 Year
  Sex: Male
  Weight: 80.36 kg

DRUGS (1)
  1. PROGLYCEM SUSPENSION [Suspect]
     Active Substance: DIAZOXIDE
     Indication: HYPOGLYCAEMIA
     Route: 048
     Dates: start: 20150721

REACTIONS (6)
  - Pharyngeal hypoaesthesia [Not Recovered/Not Resolved]
  - Product formulation issue [Unknown]
  - Product use issue [Unknown]
  - Nausea [Not Recovered/Not Resolved]
  - Product difficult to swallow [Unknown]
  - Product taste abnormal [Unknown]

NARRATIVE: CASE EVENT DATE: 20150721
